FAERS Safety Report 5059757-1 (Version None)
Quarter: 2006Q3

REPORT INFORMATION
  Report Type: 
  Country: None (occurrence: None)
  Receive Date: 20060718
  Receipt Date: 20060627
  Transmission Date: 20061208
  Serious: Yes (Hospitalization)
  Sender: FDA-Public Use
  Company Number: NL200606003867

PATIENT
  Age: 10 Year
  Sex: Male
  Weight: 34 kg

DRUGS (3)
  1. STRATTERA [Suspect]
     Indication: ATTENTION DEFICIT/HYPERACTIVITY DISORDER
     Dosage: 40 MG, DAILY (1/D), ORAL
     Route: 048
     Dates: start: 20060101
  2. XAZOL (LEVOCETIRIZINE DIHYDROCHLORIDE) [Concomitant]
  3. MELATONIN (MELATONIN) [Concomitant]

REACTIONS (8)
  - ABDOMINAL DISCOMFORT [None]
  - ABDOMINAL PAIN UPPER [None]
  - ANOREXIA [None]
  - FEELING COLD [None]
  - FOOD POISONING [None]
  - HYPOTHERMIA [None]
  - NAUSEA [None]
  - SHOCK [None]
